FAERS Safety Report 7630288-5 (Version None)
Quarter: 2011Q3

REPORT INFORMATION
  Report Type: 
  Country: None (occurrence: None)
  Receive Date: 20110722
  Receipt Date: 20110720
  Transmission Date: 20111222
  Serious: Yes (Life-Threatening, Other)
  Sender: FDA-Public Use
  Company Number: PHHY2011GB56461

PATIENT
  Age: 79 Year
  Sex: Male

DRUGS (16)
  1. ALBUTEROL [Concomitant]
     Dosage: UNK UKN, UNK
  2. CODEINE SULFATE [Suspect]
     Indication: FEMUR FRACTURE
     Dosage: 60 MG, 4 / 1DAYS
     Route: 048
     Dates: start: 20110609, end: 20110611
  3. DIGOXIN [Concomitant]
     Dosage: UNK UKN, UNK
  4. SIMVASTATIN [Concomitant]
     Dosage: UNK UKN, UNK
  5. HYDROCORTISONE [Concomitant]
     Dosage: UNK UKN, UNK
  6. SERETIDE [Concomitant]
     Dosage: UNK UKN, UNK
  7. METFORMIN HCL [Concomitant]
     Dosage: UNK UKN, UNK
  8. WARFARIN SODIUM [Concomitant]
     Dosage: UNK UKN, UNK
  9. ALENDRONIC ACID [Concomitant]
     Dosage: UNK UKN, UNK
  10. AMITRIPTYLINE HCL [Concomitant]
     Dosage: UNK UKN, UNK
  11. ACETAMINOPHEN [Concomitant]
     Dosage: UNK UKN, UNK
  12. FUROSEMIDE [Concomitant]
     Dosage: UNK UKN, UNK
  13. HUMULIN I [Concomitant]
     Dosage: UNK UKN, UNK
  14. OMEPRAZOLE [Concomitant]
     Dosage: UNK UKN, UNK
  15. TAMSULOSIN HCL [Concomitant]
     Dosage: UNK UKN, UNK
  16. ADCAL-D3 [Concomitant]
     Dosage: UNK UKN, UNK

REACTIONS (3)
  - HYPOGLYCAEMIA [None]
  - UNRESPONSIVE TO STIMULI [None]
  - TOXICITY TO VARIOUS AGENTS [None]
